FAERS Safety Report 11632650 (Version 1)
Quarter: 2015Q4

REPORT INFORMATION
  Report Type: Spontaneous
  Country: US (occurrence: US)
  Receive Date: 20151015
  Receipt Date: 20151015
  Transmission Date: 20160304
  Serious: No
  Sender: FDA-Public Use
  Company Number: US-BIOGENIDEC-2015BI138935

PATIENT
  Age: 45 Year
  Sex: Male

DRUGS (6)
  1. TECFIDERA [Suspect]
     Active Substance: DIMETHYL FUMARATE
     Indication: MULTIPLE SCLEROSIS
     Route: 048
     Dates: start: 20150924
  2. RELAFEN [Concomitant]
     Active Substance: NABUMETONE
  3. VITAMIN D [Concomitant]
     Active Substance: CHOLECALCIFEROL
  4. TECFIDERA [Suspect]
     Active Substance: DIMETHYL FUMARATE
     Indication: MULTIPLE SCLEROSIS
     Route: 048
     Dates: start: 20150917, end: 20150923
  5. BACLOFEN. [Concomitant]
     Active Substance: BACLOFEN
  6. HYDROCODONE [Concomitant]
     Active Substance: HYDROCODONE

REACTIONS (2)
  - Diarrhoea [Unknown]
  - Pyrexia [Unknown]
